FAERS Safety Report 7127427-1 (Version None)
Quarter: 2010Q4

REPORT INFORMATION
  Report Type: 
  Country: None (occurrence: None)
  Receive Date: 20101129
  Receipt Date: 20091026
  Transmission Date: 20110411
  Serious: Yes (Other)
  Sender: FDA-Public Use
  Company Number: US-PFIZER INC-2009245383

PATIENT
  Sex: Female
  Weight: 90.703 kg

DRUGS (12)
  1. REVATIO [Suspect]
     Indication: CARDIAC FAILURE CONGESTIVE
     Dosage: 20 MG, 2X/DAY
     Route: 048
     Dates: start: 20090715, end: 20091007
  2. REVATIO [Suspect]
     Indication: PULMONARY HYPERTENSION
  3. NITRO-DUR [Concomitant]
     Indication: CARDIAC FAILURE CONGESTIVE
     Dosage: UNK
     Dates: end: 20090714
  4. HUMALOG [Concomitant]
     Indication: DIABETES MELLITUS
     Dosage: 25 MG, 3X/DAY
  5. PLAVIX [Concomitant]
     Indication: HYPERTENSION
     Dosage: 75 MG, 1X/DAY
     Route: 048
  6. NEBIVOLOL [Concomitant]
     Indication: HYPERTENSION
     Dosage: 5 MG, 1X/DAY
     Route: 048
     Dates: start: 20090715
  7. SPIRONOLACTONE [Concomitant]
     Indication: CARDIAC FAILURE CONGESTIVE
     Dosage: 12.5 MG, 1X/DAY
     Route: 048
  8. LISINOPRIL [Concomitant]
     Indication: CARDIAC FAILURE CONGESTIVE
     Dosage: 5 MG, 1X/DAY
     Route: 048
  9. IMDUR [Concomitant]
     Indication: CARDIAC DISORDER
     Dosage: 60 MG, 2X/DAY
     Route: 048
     Dates: end: 20090714
  10. IMDUR [Concomitant]
     Indication: HYPERTENSION
  11. PREVACID [Concomitant]
     Indication: GASTROOESOPHAGEAL REFLUX DISEASE
     Dosage: 30 MG, 1X/DAY
     Route: 048
  12. ATENOLOL [Concomitant]
     Indication: CARDIAC FAILURE CONGESTIVE
     Dosage: 100 MG, 1X/DAY
     Route: 048
     Dates: end: 20090714

REACTIONS (4)
  - ERYTHEMA OF EYELID [None]
  - EYELID OEDEMA [None]
  - HYPERTENSION [None]
  - RASH [None]
